FAERS Safety Report 25704709 (Version 1)
Quarter: 2025Q3

REPORT INFORMATION
  Report Type: Spontaneous
  Country: US (occurrence: US)
  Receive Date: 20250820
  Receipt Date: 20250820
  Transmission Date: 20251020
  Serious: Yes (Death)
  Sender: DAIICHI
  Company Number: US-DSJP-DS-2025-159736-USAA

PATIENT
  Age: 64 Year
  Sex: Male

DRUGS (1)
  1. VANFLYTA [Suspect]
     Active Substance: QUIZARTINIB DIHYDROCHLORIDE
     Indication: Acute myeloid leukaemia
     Dosage: 35.4 MG ONCE DAILY, ON DAYS 6-19 OF EVERY 28 DAY CYCLE/
     Route: 048
     Dates: start: 20250814

REACTIONS (1)
  - Death [Fatal]

NARRATIVE: CASE EVENT DATE: 20250814
